FAERS Safety Report 21776489 (Version 3)
Quarter: 2024Q1

REPORT INFORMATION
  Report Type: Report from Study
  Country: AU (occurrence: AU)
  Receive Date: 20221226
  Receipt Date: 20240221
  Transmission Date: 20240409
  Serious: Yes (Other)
  Sender: FDA-Public Use
  Company Number: AU-002147023-NVSC2022AU297297

PATIENT
  Sex: Female

DRUGS (1)
  1. COSENTYX [Suspect]
     Active Substance: SECUKINUMAB
     Indication: Ankylosing spondylitis
     Dosage: 300 MG, QMO
     Route: 058
     Dates: start: 20220112

REACTIONS (5)
  - Gastrointestinal carcinoma [Unknown]
  - Insomnia [Unknown]
  - Eczema nummular [Unknown]
  - C-reactive protein increased [Unknown]
  - Arthralgia [Unknown]
